FAERS Safety Report 16968178 (Version 1)
Quarter: 2019Q4

REPORT INFORMATION
  Report Type: Report from Study
  Country: BR (occurrence: BR)
  Receive Date: 20191028
  Receipt Date: 20191028
  Transmission Date: 20200122
  Serious: Yes (Other)
  Sender: FDA-Public Use
  Company Number: NVSC2019BR017608

PATIENT
  Sex: Female

DRUGS (3)
  1. CARVEDILOL. [Suspect]
     Active Substance: CARVEDILOL
     Indication: PRODUCT USED FOR UNKNOWN INDICATION
     Route: 065
  2. ENTRESTO [Suspect]
     Active Substance: SACUBITRIL\VALSARTAN
     Indication: CARDIAC FAILURE
     Dosage: 50 MG (24MG/26MG)
     Route: 065
     Dates: start: 201907
  3. ENTRESTO [Suspect]
     Active Substance: SACUBITRIL\VALSARTAN
     Dosage: 100 MG (49MG/51MG), BID
     Route: 065
     Dates: start: 201908

REACTIONS (14)
  - Weight increased [Unknown]
  - Fluid retention [Unknown]
  - Diabetic macroangiopathy [Unknown]
  - Thrombosis [Unknown]
  - Eye disorder [Unknown]
  - Musculoskeletal stiffness [Unknown]
  - Myocardial infarction [Unknown]
  - Menorrhagia [Unknown]
  - Type 1 diabetes mellitus [Unknown]
  - Peripheral swelling [Unknown]
  - Eye swelling [Unknown]
  - Swelling face [Unknown]
  - Hypercoagulation [Unknown]
  - Menstruation delayed [Unknown]
